FAERS Safety Report 8962111 (Version 3)
Quarter: 2017Q2

REPORT INFORMATION
  Report Type: Spontaneous
  Country: US (occurrence: US)
  Receive Date: 20121212
  Receipt Date: 20170509
  Transmission Date: 20170830
  Serious: Yes (Other)
  Sender: FDA-Public Use
  Company Number: US-SANOFI-AVENTIS-2012SA089511

PATIENT
  Age: 68 Year
  Sex: Female
  Weight: 56.81 kg

DRUGS (6)
  1. LANTUS SOLOSTAR [Concomitant]
     Active Substance: INSULIN GLARGINE
  2. APIDRA SOLOSTAR [Suspect]
     Active Substance: INSULIN GLULISINE
     Indication: TYPE 1 DIABETES MELLITUS
     Dosage: 2-10 UNITS DEPENDING ON BLOOD SUGAR
     Route: 058
     Dates: start: 20120401
  3. INSULIN DETEMIR [Suspect]
     Active Substance: INSULIN DETEMIR
     Route: 065
  4. SOLOSTAR [Concomitant]
     Active Substance: DEVICE
     Indication: TYPE 1 DIABETES MELLITUS
     Dates: start: 20120401
  5. SOLOSTAR [Concomitant]
     Active Substance: DEVICE
     Dosage: 12 UNITS IN THE MORNING AND 6 UNITS AT NIGHT
  6. LEVOTHYROXINE. [Concomitant]
     Active Substance: LEVOTHYROXINE
     Indication: HYPOTHYROIDISM
     Dosage: 137 AND 25 MCG EACH MORNING

REACTIONS (4)
  - Foot fracture [Unknown]
  - Concussion [Unknown]
  - Fall [Unknown]
  - Blood glucose increased [Unknown]

NARRATIVE: CASE EVENT DATE: 2012
